FAERS Safety Report 5351035-6 (Version None)
Quarter: 2007Q2

REPORT INFORMATION
  Report Type: 
  Country: None (occurrence: None)
  Receive Date: 20070606
  Receipt Date: 20070522
  Transmission Date: 20071010
  Serious: Yes (Hospitalization)
  Sender: FDA-Public Use
  Company Number: 2007000844

PATIENT
  Age: 64 Year
  Sex: Female
  Weight: 56.4 kg

DRUGS (12)
  1. ERLOTINIB (TABLET) [Suspect]
     Indication: NON-SMALL CELL LUNG CANCER METASTATIC
     Dosage: 150 MG (QD), ORAL
     Route: 048
     Dates: start: 20070122
  2. BEVACIZUMAB (INJECTION FOR INFUSION) [Suspect]
     Indication: NON-SMALL CELL LUNG CANCER METASTATIC
     Dosage: 935 MG, (Q3W), INTRAVENOUS
     Route: 042
     Dates: start: 20061020
  3. CARBOPLATIN [Concomitant]
  4. TAXOL [Concomitant]
  5. PREMPRO 14/14 [Concomitant]
  6. LIPITOR [Concomitant]
  7. MULTIVITAMIN [Concomitant]
  8. CALCIUM (CALCIUM) [Concomitant]
  9. ASCORBIC ACID [Concomitant]
  10. ASPIRIN [Concomitant]
  11. VITAMIN E [Concomitant]
  12. LISINOPRIL [Concomitant]

REACTIONS (7)
  - ENCEPHALITIC INFECTION [None]
  - ENCEPHALOPATHY [None]
  - MEMORY IMPAIRMENT [None]
  - METASTASES TO CENTRAL NERVOUS SYSTEM [None]
  - METASTASES TO MENINGES [None]
  - PARANEOPLASTIC SYNDROME [None]
  - WEIGHT DECREASED [None]
